APPROVED DRUG PRODUCT: RITALIN
Active Ingredient: METHYLPHENIDATE HYDROCHLORIDE
Strength: 20MG
Dosage Form/Route: TABLET;ORAL
Application: N010187 | Product #010 | TE Code: AB
Applicant: SANDOZ INC
Approved: Approved Prior to Jan 1, 1982 | RLD: Yes | RS: Yes | Type: RX